FAERS Safety Report 23153183 (Version 3)
Quarter: 2024Q4

REPORT INFORMATION
  Report Type: Spontaneous
  Country: CO (occurrence: CO)
  Receive Date: 20231107
  Receipt Date: 20241129
  Transmission Date: 20250114
  Serious: Yes (Other)
  Sender: SANDOZ
  Company Number: CO-002147023-NVSC2021CO192372

PATIENT
  Sex: Female
  Weight: 74 kg

DRUGS (5)
  1. FULVESTRANT [Suspect]
     Active Substance: FULVESTRANT
     Indication: Product used for unknown indication
     Dosage: UNK (EVERY 28 DAYS)
     Route: 065
  2. KISQALI [Suspect]
     Active Substance: RIBOCICLIB
     Indication: Breast cancer metastatic
     Dosage: 600 MG, QD
     Route: 058
  3. KISQALI [Suspect]
     Active Substance: RIBOCICLIB
     Dosage: 600 MG, QD (STARTED ON MONDAY 26TH)
     Route: 048
  4. KISQALI [Suspect]
     Active Substance: RIBOCICLIB
     Indication: Hormone receptor positive HER2 negative breast cancer
     Dosage: UNK
     Route: 048
  5. LUBRIDERM [Suspect]
     Active Substance: AVOBENZONE\HOMOSALATE\OCTISALATE\OCTOCRYLENE\OXYBENZONE
     Indication: Product used for unknown indication
     Dosage: UNK
     Route: 065

REACTIONS (38)
  - Tooth fracture [Unknown]
  - Rectal stenosis [Unknown]
  - Glaucoma [Unknown]
  - Choking [Unknown]
  - Visual impairment [Unknown]
  - Decreased immune responsiveness [Unknown]
  - Nervousness [Unknown]
  - Anorectal discomfort [Unknown]
  - General physical health deterioration [Unknown]
  - Skin discolouration [Unknown]
  - Gait disturbance [Unknown]
  - Hypoaesthesia [Unknown]
  - Eye pruritus [Unknown]
  - Abdominal discomfort [Unknown]
  - Ocular hyperaemia [Unknown]
  - Osteoporosis [Unknown]
  - Hair texture abnormal [Unknown]
  - Weight decreased [Unknown]
  - Anxiety [Unknown]
  - Depressed mood [Unknown]
  - Laboratory test abnormal [Unknown]
  - Radiation injury [Unknown]
  - Wound [Unknown]
  - Limb discomfort [Unknown]
  - Stomatitis [Unknown]
  - Alopecia [Unknown]
  - Dyspnoea [Unknown]
  - Tendon injury [Unknown]
  - Body height decreased [Unknown]
  - Gastrooesophageal reflux disease [Unknown]
  - Musculoskeletal chest pain [Not Recovered/Not Resolved]
  - Arthralgia [Unknown]
  - Infection [Unknown]
  - Nausea [Unknown]
  - Depression [Unknown]
  - Malaise [Unknown]
  - Musculoskeletal pain [Unknown]
  - Pain [Recovering/Resolving]
